FAERS Safety Report 11597071 (Version 1)
Quarter: 2015Q4

REPORT INFORMATION
  Report Type: Spontaneous
  Country: None (occurrence: None)
  Receive Date: 20151005
  Receipt Date: 20151005
  Transmission Date: 20160304
  Serious: No
  Sender: FDA-Public Use
  Company Number: None

PATIENT
  Age: 25 Year
  Sex: Male
  Weight: 63.5 kg

DRUGS (2)
  1. ONE A DAY CENTRUM [Concomitant]
  2. FINASTERIDE. [Suspect]
     Active Substance: FINASTERIDE

REACTIONS (5)
  - Ejaculation disorder [None]
  - Testicular pain [None]
  - Sexual dysfunction [None]
  - Penile size reduced [None]
  - Testicular disorder [None]
